FAERS Safety Report 6786572-0 (Version None)
Quarter: 2010Q2

REPORT INFORMATION
  Report Type: 
  Country: None (occurrence: None)
  Receive Date: 20100623
  Receipt Date: 20100611
  Transmission Date: 20101027
  Serious: Yes (Other)
  Sender: FDA-Public Use
  Company Number: GB-BAUSCH-2010BL003159

PATIENT
  Age: 32 Year
  Sex: Male

DRUGS (11)
  1. PREDNISOLONE [Suspect]
     Indication: GRAFT VERSUS HOST DISEASE
  2. BLEOMYCIN [Suspect]
     Indication: TERATOMA OF TESTIS
     Dates: start: 19960101
  3. CISPLATIN [Suspect]
     Indication: TERATOMA OF TESTIS
     Dates: start: 19960101
  4. CYCLOPHOSPHAMIDE [Suspect]
     Indication: ALLOGENIC BONE MARROW TRANSPLANTATION THERAPY
  5. CYCLOSPORINE [Suspect]
     Indication: DRUG USE FOR UNKNOWN INDICATION
     Dates: start: 19991201, end: 20030201
  6. CYTARABINE [Suspect]
     Indication: ACUTE MYELOID LEUKAEMIA
     Dates: start: 19980101
  7. DAUNORUBICIN HCL [Suspect]
     Indication: ACUTE MYELOID LEUKAEMIA
     Dates: start: 19980101
  8. ETOPOSIDE [Suspect]
     Indication: TERATOMA OF TESTIS
     Dates: start: 19960101
  9. FLUDARABINE [Suspect]
     Indication: ACUTE MYELOID LEUKAEMIA
     Dates: start: 19991101
  10. MELPHALAN HYDROCHLORIDE [Suspect]
     Indication: STEM CELL TRANSPLANT
     Dates: start: 20091201
  11. RADIOPHARMACEUTICALS [Suspect]

REACTIONS (6)
  - ACUTE MYELOID LEUKAEMIA [None]
  - GRAFT VERSUS HOST DISEASE [None]
  - NEOPLASM SKIN [None]
  - OESOPHAGEAL SQUAMOUS CELL CARCINOMA [None]
  - POROKERATOSIS [None]
  - SWEAT GLAND TUMOUR [None]
